FAERS Safety Report 8072080-6 (Version None)
Quarter: 2012Q1

REPORT INFORMATION
  Report Type: 
  Country: None (occurrence: None)
  Receive Date: 20120126
  Receipt Date: 20120118
  Transmission Date: 20120608
  Serious: Yes (Hospitalization, Other)
  Sender: FDA-Public Use
  Company Number: US-CELGENEUS-163-21880-11122180

PATIENT
  Sex: Female
  Weight: 61.2 kg

DRUGS (5)
  1. REVLIMID [Suspect]
     Dosage: 5 MILLIGRAM
     Route: 048
     Dates: start: 20110826, end: 20111210
  2. BONIVA [Concomitant]
     Route: 065
     Dates: start: 20110809
  3. NEXIUM [Concomitant]
     Dosage: 40
     Route: 065
     Dates: start: 20110809
  4. SINGULAIR [Concomitant]
     Route: 065
     Dates: start: 20110809
  5. TRAMADOL HCL [Concomitant]
     Route: 065
     Dates: start: 20110809

REACTIONS (1)
  - POLYMYALGIA RHEUMATICA [None]
